FAERS Safety Report 16532657 (Version 1)
Quarter: 2019Q3

REPORT INFORMATION
  Report Type: Spontaneous
  Country: JP (occurrence: JP)
  Receive Date: 20190705
  Receipt Date: 20190705
  Transmission Date: 20191004
  Serious: Yes (Hospitalization, Other)
  Sender: FDA-Public Use
  Company Number: JP-ALVOGEN-2019-ALVOGEN-100466

PATIENT
  Age: 64 Year
  Sex: Male

DRUGS (2)
  1. NITROGLYCERIN. [Suspect]
     Active Substance: NITROGLYCERIN
     Indication: PRINZMETAL ANGINA
     Route: 022
  2. ACETYLCHOLINE [Suspect]
     Active Substance: ACETYLCHOLINE CHLORIDE
     Indication: PRINZMETAL ANGINA
     Route: 022

REACTIONS (3)
  - Electrocardiogram QRS complex abnormal [Recovered/Resolved]
  - Myocardial ischaemia [Recovered/Resolved]
  - Electrocardiogram J wave increased [Recovered/Resolved]
